FAERS Safety Report 18563919 (Version 1)
Quarter: 2020Q4

REPORT INFORMATION
  Report Type: Spontaneous
  Country: GB (occurrence: GB)
  Receive Date: 20201201
  Receipt Date: 20201201
  Transmission Date: 20210114
  Serious: Yes (Other)
  Sender: FDA-Public Use
  Company Number: GB-ACCORD-209701

PATIENT
  Sex: Female

DRUGS (8)
  1. DOSULEPIN HYDROCHLORIDE [Concomitant]
     Active Substance: DOTHIEPIN HYDROCHLORIDE
     Indication: DEPRESSION
     Dosage: FOR 30 YEARS.
  2. INFLUENZA VACCINE [Suspect]
     Active Substance: INFLUENZA VIRUS VACCINE
     Indication: INFLUENZA IMMUNISATION
  3. SALBUTAMOL [Concomitant]
     Active Substance: ALBUTEROL
     Dosage: FOR 20 YEARS.
  4. QVAR [Concomitant]
     Active Substance: BECLOMETHASONE DIPROPIONATE
     Dosage: THIS MEDICATION HAS BEEN TAKEN FOR ABOUT 20 YEARS BUT DOSE  WAS INCREASED ABOUT 2 YEARS AGO.
  5. TRIMETHOPRIM. [Concomitant]
     Active Substance: TRIMETHOPRIM
     Indication: URINARY TRACT INFECTION
  6. PRAVASTATIN. [Suspect]
     Active Substance: PRAVASTATIN
     Indication: PRODUCT USED FOR UNKNOWN INDICATION
  7. MOMETASONE [Concomitant]
     Active Substance: MOMETASONE
     Indication: ASTHMA
     Dosage: FOR ABOUT 6 YEARS.
  8. LEVOTHYROXINE. [Concomitant]
     Active Substance: LEVOTHYROXINE
     Indication: THYROIDECTOMY
     Dosage: FOR ABOUT 6 YEARS.

REACTIONS (4)
  - Pruritus [Recovered/Resolved]
  - Hypersomnia [Recovered/Resolved]
  - Delirium [Recovered/Resolved]
  - Decreased appetite [Recovered/Resolved]
